FAERS Safety Report 16190811 (Version 1)
Quarter: 2019Q2

REPORT INFORMATION
  Report Type: Spontaneous
  Country: US (occurrence: US)
  Receive Date: 20190311
  Receipt Date: 20190311
  Transmission Date: 20190711
  Serious: No
  Sender: FDA-Public Use
  Company Number: None

PATIENT
  Age: 61 Year
  Sex: Male

DRUGS (2)
  1. CEFTRIAXONE 2GM [Suspect]
     Active Substance: CEFTRIAXONE
     Indication: COMPLICATION ASSOCIATED WITH DEVICE
     Route: 042
     Dates: start: 20190216, end: 20190304
  2. CEFTRIAXONE 2GM [Suspect]
     Active Substance: CEFTRIAXONE
     Indication: DEVICE RELATED INFECTION
     Route: 042
     Dates: start: 20190216, end: 20190304

REACTIONS (2)
  - Pruritus [None]
  - Rash papular [None]

NARRATIVE: CASE EVENT DATE: 201903
